FAERS Safety Report 4881926-1 (Version None)
Quarter: 2006Q1

REPORT INFORMATION
  Report Type: 
  Country: None (occurrence: None)
  Receive Date: 20060112
  Receipt Date: 20051228
  Transmission Date: 20060701
  Serious: Yes (Hospitalization)
  Sender: FDA-Public Use
  Company Number: 2006S1000006

PATIENT
  Sex: Male

DRUGS (1)
  1. FENTANYL [Suspect]
     Dosage: TRANS
     Route: 062

REACTIONS (2)
  - INCORRECT DOSE ADMINISTERED [None]
  - SKIN IRRITATION [None]
